FAERS Safety Report 16758192 (Version 2)
Quarter: 2019Q3

REPORT INFORMATION
  Report Type: Spontaneous
  Country: PT (occurrence: ES)
  Receive Date: 20190830
  Receipt Date: 20190925
  Transmission Date: 20191005
  Serious: Yes (Disabling)
  Sender: FDA-Public Use
  Company Number: PT-SUNOVION-2019SUN003604

PATIENT

DRUGS (1)
  1. ZEBINIX [Suspect]
     Active Substance: ESLICARBAZEPINE ACETATE
     Indication: EPILEPSY
     Dosage: 800 MG, QD
     Route: 048
     Dates: start: 2018, end: 2019

REACTIONS (8)
  - Nervousness [Not Recovered/Not Resolved]
  - Balance disorder [Not Recovered/Not Resolved]
  - Withdrawal syndrome [Recovering/Resolving]
  - Disturbance in attention [Not Recovered/Not Resolved]
  - Tinnitus [Not Recovered/Not Resolved]
  - Rebound effect [Recovering/Resolving]
  - Dizziness [Recovering/Resolving]
  - Daydreaming [Recovering/Resolving]

NARRATIVE: CASE EVENT DATE: 2019
